FAERS Safety Report 9232003 (Version 1)
Quarter: 2013Q2

REPORT INFORMATION
  Report Type: Spontaneous
  Country: US (occurrence: US)
  Receive Date: 20130415
  Receipt Date: 20130415
  Transmission Date: 20140414
  Serious: No
  Sender: FDA-Public Use
  Company Number: US-PFIZER INC-2013114708

PATIENT
  Age: 35 Year
  Sex: Female
  Weight: 77.1 kg

DRUGS (11)
  1. ADVIL PM [Suspect]
     Indication: ARTHROPATHY
     Dosage: 200/38 MG, UNK
     Dates: start: 20130409
  2. ADVIL PM [Suspect]
     Indication: INSOMNIA
  3. VYVANSE [Suspect]
     Indication: DEPRESSION
     Dosage: 60 MG, DAILY
  4. SEROQUEL [Concomitant]
     Indication: AFFECTIVE DISORDER
     Dosage: 400 MG, DAILY AT NIGHT
  5. FLUVOXAMINE MALEATE [Concomitant]
     Indication: DEPRESSION
     Dosage: 200 MG, DAILY AT NIGHT
  6. FLUVOXAMINE MALEATE [Concomitant]
     Indication: AFFECTIVE DISORDER
  7. FLUVOXAMINE MALEATE [Concomitant]
     Indication: ANXIETY
  8. LAMICTAL [Concomitant]
     Indication: DEPRESSION
     Dosage: 200 MG, DAILY
  9. LAMICTAL [Concomitant]
     Indication: AFFECTIVE DISORDER
  10. LAMICTAL [Concomitant]
     Indication: ANXIETY
  11. ADDERALL [Concomitant]
     Dosage: 10 MG, DAILY AT NOON

REACTIONS (2)
  - Overdose [Unknown]
  - Fear [Unknown]
